FAERS Safety Report 7412173-7 (Version None)
Quarter: 2011Q2

REPORT INFORMATION
  Report Type: 
  Country: None (occurrence: None)
  Receive Date: 20110413
  Receipt Date: 20110408
  Transmission Date: 20111010
  Serious: Yes (Hospitalization)
  Sender: FDA-Public Use
  Company Number: CA-ABBOTT-11P-028-0717812-00

PATIENT
  Sex: Male
  Weight: 158.9 kg

DRUGS (3)
  1. HUMIRA [Suspect]
     Indication: CROHN'S DISEASE
     Route: 058
     Dates: start: 20110122
  2. PREDNISONE [Concomitant]
     Indication: CROHN'S DISEASE
     Route: 048
  3. SPIRONOLACTONE [Concomitant]
     Indication: HYPERTENSION
     Route: 048

REACTIONS (5)
  - PNEUMONIA [None]
  - COUGH [None]
  - BLOOD PRESSURE INCREASED [None]
  - DYSPNOEA [None]
  - MALAISE [None]
